FAERS Safety Report 23213683 (Version 1)
Quarter: 2023Q4

REPORT INFORMATION
  Report Type: Spontaneous
  Country: US (occurrence: None)
  Receive Date: 20231121
  Receipt Date: 20231121
  Transmission Date: 20240109
  Serious: Yes (Hospitalization)
  Sender: FDA-Public Use
  Company Number: None

PATIENT
  Sex: Female

DRUGS (1)
  1. HUMIRA [Suspect]
     Active Substance: ADALIMUMAB
     Indication: Crohn^s disease
     Dosage: OTHER QUANTITY : 40MG/0.4ML;?OTHER FREQUENCY : EVERY 14 DAYS;?
     Route: 058
     Dates: start: 202310

REACTIONS (3)
  - Therapy interrupted [None]
  - Gastrointestinal inflammation [None]
  - Abscess [None]
